FAERS Safety Report 17704721 (Version 7)
Quarter: 2024Q4

REPORT INFORMATION
  Report Type: Spontaneous
  Country: US (occurrence: US)
  Receive Date: 20200424
  Receipt Date: 20241230
  Transmission Date: 20250114
  Serious: Yes (Hospitalization)
  Sender: SANOFI AVENTIS
  Company Number: US-SA-2020SA103218

PATIENT
  Age: 55 Year
  Sex: Male

DRUGS (1)
  1. CAPRELSA [Suspect]
     Active Substance: VANDETANIB
     Indication: Thyroid cancer
     Dosage: 300 MG, QD
     Route: 048
     Dates: start: 20200224

REACTIONS (9)
  - Hospitalisation [Unknown]
  - Rhinorrhoea [Unknown]
  - Arthralgia [Unknown]
  - Infection [Unknown]
  - Memory impairment [Unknown]
  - Rash [Unknown]
  - Blood pressure increased [Unknown]
  - Acne [Unknown]
  - Product dose omission in error [Unknown]

NARRATIVE: CASE EVENT DATE: 20241220
